FAERS Safety Report 13549688 (Version 1)
Quarter: 2017Q2

REPORT INFORMATION
  Report Type: Spontaneous
  Country: US (occurrence: US)
  Receive Date: 20170516
  Receipt Date: 20170516
  Transmission Date: 20170830
  Serious: No
  Sender: FDA-Public Use
  Company Number: US-TEVA-728154ACC

PATIENT
  Sex: Female
  Weight: 90.8 kg

DRUGS (1)
  1. OXYCODONE/APAP [Suspect]
     Active Substance: ACETAMINOPHEN\OXYCODONE HYDROCHLORIDE
     Indication: PAIN
     Dosage: OXYCODONE/ACETAMINOPHEN ; 5/325 MG
     Dates: start: 2016

REACTIONS (7)
  - Nasal discomfort [Unknown]
  - Drug ineffective [Unknown]
  - Eye irritation [Unknown]
  - Malaise [Unknown]
  - Palpitations [Unknown]
  - Product quality issue [Unknown]
  - Chest discomfort [Unknown]
